FAERS Safety Report 17526506 (Version 4)
Quarter: 2020Q3

REPORT INFORMATION
  Report Type: Other
  Country: GB (occurrence: GB)
  Receive Date: 20200311
  Receipt Date: 20200716
  Transmission Date: 20201102
  Serious: Yes (Death, Other)
  Sender: FDA-Public Use
  Company Number: GB-STRIDES ARCOLAB LIMITED-2020SP003587

PATIENT
  Age: 49 Year
  Sex: Female

DRUGS (5)
  1. IBUPROFEN. [Suspect]
     Active Substance: IBUPROFEN
     Indication: PAIN
  2. IBUPROFEN. [Suspect]
     Active Substance: IBUPROFEN
     Indication: MUSCULOSKELETAL PAIN
     Dosage: UNK
     Route: 065
  3. MAVENCLAD [Suspect]
     Active Substance: CLADRIBINE
     Indication: MULTIPLE SCLEROSIS
     Dosage: UNK (FIRST WEEK THERAPY: TWO TABLETS ON DAYS 1 TO 2 AND ONE TABLET ON DAYS 3 TO 5)
     Route: 048
     Dates: start: 20191231, end: 20200103
  4. MAVENCLAD [Suspect]
     Active Substance: CLADRIBINE
     Dosage: UNK (SECOND WEEK THERAPY: TWO TABLETS ON DAYS 1 TO 2 AND ONE TABLET ON DAYS 3 TO 5)
     Route: 048
  5. IBUPROFEN. [Suspect]
     Active Substance: IBUPROFEN
     Indication: BACK PAIN

REACTIONS (6)
  - Renal function test abnormal [Unknown]
  - Lower respiratory tract infection [Recovered/Resolved]
  - Fall [Unknown]
  - Somnolence [Unknown]
  - Asthenia [Unknown]
  - Head injury [Fatal]

NARRATIVE: CASE EVENT DATE: 202001
